FAERS Safety Report 12683558 (Version 1)
Quarter: 2016Q3

REPORT INFORMATION
  Report Type: Report from Study
  Country: US (occurrence: US)
  Receive Date: 20160825
  Receipt Date: 20160825
  Transmission Date: 20161109
  Serious: No
  Sender: FDA-Public Use
  Company Number: US-009507513-1608USA009006

PATIENT
  Age: 91 Year
  Sex: Male

DRUGS (1)
  1. KEYTRUDA [Suspect]
     Active Substance: PEMBROLIZUMAB
     Dosage: ONE TREATMENT
     Route: 042
     Dates: start: 20160811

REACTIONS (7)
  - Nausea [Unknown]
  - Lethargy [Unknown]
  - Asthenia [Unknown]
  - Rash [Recovering/Resolving]
  - Fatigue [Unknown]
  - Depression [Unknown]
  - Dizziness [Unknown]

NARRATIVE: CASE EVENT DATE: 201608
